FAERS Safety Report 11702979 (Version 1)
Quarter: 2015Q4

REPORT INFORMATION
  Report Type: Spontaneous
  Country: EG (occurrence: EG)
  Receive Date: 20151105
  Receipt Date: 20151105
  Transmission Date: 20160304
  Serious: Yes (Other)
  Sender: FDA-Public Use
  Company Number: ALCN2015EG006778

PATIENT
  Sex: Male

DRUGS (1)
  1. CYCLOPENTOLATE HCL [Suspect]
     Active Substance: CYCLOPENTOLATE HYDROCHLORIDE
     Indication: MYDRIASIS
     Dosage: UNK
     Route: 047

REACTIONS (2)
  - Seizure [Unknown]
  - Incorrect dose administered [Unknown]
